FAERS Safety Report 7821757 (Version 2)
Quarter: 2013Q2

REPORT INFORMATION
  Report Type: Spontaneous
  Country: US (occurrence: None)
  Receive Date: 20101130
  Receipt Date: 20121203
  Transmission Date: 20140414
  Serious: Yes (Hospitalization, Disabling, Other)
  Sender: FDA-Public Use
  Company Number: 2010SP015492

PATIENT
  Age: 37 Year
  Sex: Female
  Weight: 99.8 kg

DRUGS (2)
  1. NUVARING [Suspect]
     Indication: MENSTRUATION IRREGULAR
     Dates: start: 200912
  2. NUVARING [Suspect]
     Dates: start: 200912

REACTIONS (18)
  - MUSCLE RUPTURE [None]
  - PULMONARY EMBOLISM [None]
  - THROMBOSIS [None]
  - Deep vein thrombosis [None]
  - Phlebitis [None]
  - Muscle rupture [None]
  - Varicose vein [None]
  - Diabetes mellitus [None]
  - Infection [None]
  - Migraine [None]
  - Post-traumatic stress disorder [None]
  - Cervical dysplasia [None]
  - Papilloma viral infection [None]
  - Gallbladder disorder [None]
  - Deep vein thrombosis [None]
  - Pulmonary hypertension [None]
  - Surgery [None]
  - Hypertension [None]
